FAERS Safety Report 16023681 (Version 3)
Quarter: 2022Q1

REPORT INFORMATION
  Report Type: Report from Study
  Country: JP (occurrence: JP)
  Receive Date: 20190301
  Receipt Date: 20220302
  Transmission Date: 20220423
  Serious: Yes (Hospitalization, Other)
  Sender: FDA-Public Use
  Company Number: JP-JNJFOC-20190229683

PATIENT

DRUGS (4)
  1. REMICADE [Suspect]
     Active Substance: INFLIXIMAB
     Indication: Crohn^s disease
     Route: 042
  2. AZATHIOPRINE [Concomitant]
     Active Substance: AZATHIOPRINE
     Dosage: 50 OR 75 MG/DAY
     Route: 065
  3. MERCAPTOPURINE [Concomitant]
     Active Substance: MERCAPTOPURINE
     Route: 065
  4. MESALAMINE [Concomitant]
     Active Substance: MESALAMINE

REACTIONS (16)
  - Pancreatitis acute [Unknown]
  - Meningitis [Unknown]
  - Malaise [Unknown]
  - Gastrointestinal disorder [Unknown]
  - Alopecia [Unknown]
  - Pneumonia [Unknown]
  - Leukopenia [Unknown]
  - Demyelination [Unknown]
  - Psoriasis [Unknown]
  - Subcutaneous abscess [Unknown]
  - Rash [Unknown]
  - Hepatic function abnormal [Unknown]
  - Myalgia [Unknown]
  - Pyrexia [Unknown]
  - Arthralgia [Unknown]
  - Therapeutic product effect decreased [Unknown]
